FAERS Safety Report 9454515 (Version 3)
Quarter: 2013Q4

REPORT INFORMATION
  Report Type: Report from Study
  Country: CO (occurrence: CO)
  Receive Date: 20130812
  Receipt Date: 20131021
  Transmission Date: 20140711
  Serious: Yes (Death, Hospitalization)
  Sender: FDA-Public Use
  Company Number: CO-US-EMD SERONO, INC.-7228779

PATIENT
  Age: 62 Year
  Sex: Female
  Weight: 35 kg

DRUGS (1)
  1. REBIF [Suspect]
     Indication: MULTIPLE SCLEROSIS
     Route: 058
     Dates: start: 20121212, end: 201306

REACTIONS (2)
  - Pneumonia [Fatal]
  - Respiratory arrest [Fatal]
